FAERS Safety Report 15175624 (Version 1)
Quarter: 2018Q3

REPORT INFORMATION
  Report Type: Spontaneous
  Country: US (occurrence: US)
  Receive Date: 20180720
  Receipt Date: 20180720
  Transmission Date: 20181010
  Serious: Yes (Other)
  Sender: FDA-Public Use
  Company Number: US-SA-2018SA017592

PATIENT
  Age: 63 Year
  Sex: Female

DRUGS (5)
  1. DECADRON [DEXAMETHASONE ACETATE] [Concomitant]
  2. TAXOTERE [Suspect]
     Active Substance: DOCETAXEL
     Indication: BREAST CANCER FEMALE
     Dosage: 130 MG,Q3W
     Route: 042
     Dates: start: 20060712, end: 20060712
  3. ZOFRAN [ONDANSETRON] [Concomitant]
  4. TAXOTERE [Suspect]
     Active Substance: DOCETAXEL
     Dosage: 130 MG,Q3W
     Route: 042
     Dates: start: 20060915, end: 20060915
  5. DEXAMETHASONE. [Concomitant]
     Active Substance: DEXAMETHASONE

REACTIONS (1)
  - Alopecia [Recovering/Resolving]

NARRATIVE: CASE EVENT DATE: 20070316
